FAERS Safety Report 7733965-0 (Version None)
Quarter: 2011Q3

REPORT INFORMATION
  Report Type: 
  Country: None (occurrence: None)
  Receive Date: 20110901
  Receipt Date: 20110819
  Transmission Date: 20111222
  Serious: Yes (Other)
  Sender: FDA-Public Use
  Company Number: 2011AP001834

PATIENT
  Age: 48 Year
  Sex: Female

DRUGS (2)
  1. FLUTICASONE PROPIONATE [Suspect]
     Indication: RHINITIS ALLERGIC
     Dosage: NAS
     Route: 045
  2. FLUTICASONE PROPIONATE [Suspect]
     Indication: SINUSITIS
     Dosage: NAS
     Route: 045

REACTIONS (1)
  - CHORIORETINOPATHY [None]
